FAERS Safety Report 16974884 (Version 1)
Quarter: 2019Q4

REPORT INFORMATION
  Report Type: Spontaneous
  Country: US (occurrence: US)
  Receive Date: 20190913
  Receipt Date: 20190913
  Transmission Date: 20200122
  Serious: No
  Sender: FDA-Public Use
  Company Number: None

PATIENT
  Age: 30 Year
  Sex: Female
  Weight: 90.72 kg

DRUGS (1)
  1. NLFEDIPINE EXTENDED RELEASE MANUFACTURED BY INGENUS [Suspect]
     Active Substance: NIFEDIPINE
     Indication: GESTATIONAL HYPERTENSION
     Dates: start: 20190812, end: 20190815

REACTIONS (3)
  - Headache [None]
  - Maternal exposure during pregnancy [None]
  - Product substitution issue [None]

NARRATIVE: CASE EVENT DATE: 20190815
